FAERS Safety Report 20918180 (Version 1)
Quarter: 2022Q2

REPORT INFORMATION
  Report Type: Report from Study
  Country: CN (occurrence: CN)
  Receive Date: 20220606
  Receipt Date: 20220606
  Transmission Date: 20220721
  Serious: Yes (Hospitalization)
  Sender: FDA-Public Use
  Company Number: CN-G1-000554

PATIENT
  Age: 61 Year
  Sex: Male
  Weight: 60 kg

DRUGS (6)
  1. TRILACICLIB [Suspect]
     Active Substance: TRILACICLIB
     Indication: Myelosuppression
     Dosage: TIME INTERVAL: CYCLICAL; 240 MG/M^2 ON DAY 1 AND 2 EACH CYCLE.
     Route: 041
     Dates: start: 20211229, end: 20220519
  2. BEVACIZUMAB [Suspect]
     Active Substance: BEVACIZUMAB
     Indication: Colon cancer metastatic
     Dosage: TIME INTERVAL: CYCLICAL; 5 MG/KG DAY 1 OF EACH CYCLE
     Route: 041
     Dates: start: 20211229, end: 20220518
  3. FLUOROURACIL [Suspect]
     Active Substance: FLUOROURACIL
     Indication: Colon cancer metastatic
     Dosage: TIME INTERVAL: CYCLICAL; 2400 MG/M2 OVER 48 HOURS BY CONTINUOUS INFUSION STARTING ON DAY 1 OF EAC...
     Route: 041
     Dates: start: 20211229, end: 20220520
  4. IRINOTECAN [Suspect]
     Active Substance: IRINOTECAN
     Indication: Colon cancer metastatic
     Dosage: TIME INTERVAL: CYCLICAL; 165 MG/M2 ON DAY 1 OF EACH CYCLE
     Route: 041
     Dates: start: 20211229, end: 20220518
  5. LEUCOVORIN [Suspect]
     Active Substance: LEUCOVORIN
     Indication: Colon cancer metastatic
     Dosage: TIME INTERVAL: CYCLICAL; 400 MG/M2 ON DAY 1 OF EACH CYCLE
     Route: 041
     Dates: start: 20211229, end: 20220518
  6. OXALIPLATIN [Suspect]
     Active Substance: OXALIPLATIN
     Indication: Colon cancer metastatic
     Dosage: TIME INTERVAL: CYCLICAL; 85 MG/M2 ON DAY 1 OF EACH CYCLE
     Route: 041
     Dates: start: 20211229, end: 20220518

REACTIONS (1)
  - Vomiting [None]

NARRATIVE: CASE EVENT DATE: 20220523
